FAERS Safety Report 24102543 (Version 1)
Quarter: 2024Q3

REPORT INFORMATION
  Report Type: Spontaneous
  Country: US (occurrence: US)
  Receive Date: 20240717
  Receipt Date: 20240717
  Transmission Date: 20241017
  Serious: Yes (Hospitalization, Other)
  Sender: ZYDUS PHARM
  Company Number: US-CADILA HEALTHCARE LIMITED-US-ZYDUS-109443

PATIENT

DRUGS (1)
  1. LAMOTRIGINE [Suspect]
     Active Substance: LAMOTRIGINE
     Indication: Bipolar disorder
     Dosage: 100 MILLIGRAM, QD
     Route: 065

REACTIONS (4)
  - Status epilepticus [Unknown]
  - Drug reaction with eosinophilia and systemic symptoms [Unknown]
  - Encephalitis [Unknown]
  - Human herpesvirus 6 infection reactivation [Recovered/Resolved]
